FAERS Safety Report 10985062 (Version 1)
Quarter: 2015Q1

REPORT INFORMATION
  Report Type: Spontaneous
  Country: US (occurrence: None)
  Receive Date: 20150313
  Receipt Date: 20150313
  Transmission Date: 20150721
  Serious: Yes (Other)
  Sender: FDA-Public Use
  Company Number: 1383811

PATIENT
  Sex: Female

DRUGS (5)
  1. XOLAIR [Suspect]
     Active Substance: OMALIZUMAB
     Indication: ASTHMA
     Dosage: 300 MG, 1 IN 2 WK, SUBCUTANEOUS
     Route: 058
     Dates: start: 201307, end: 201310
  2. ADVAIR DISKUS (FLUTICASONE PROPIONATE, SALMETEROL XINAFOATE) [Concomitant]
  3. PROAIR (UNITED STATES) (SALBUTAMOL SULFATE) (INHALER)? [Concomitant]
  4. ADDERALL (DEXTROAMPHETAMINE SACCHARATE, DEXAMFETAMINE SULFATE) (TABLET)? [Concomitant]
  5. CLARITIN (LORATADINE) (TABLET) [Concomitant]

REACTIONS (1)
  - Drug hypersensitivity [None]
